FAERS Safety Report 4597582-6 (Version None)
Quarter: 2005Q1

REPORT INFORMATION
  Report Type: 
  Country: None (occurrence: None)
  Receive Date: 20050303
  Receipt Date: 20050218
  Transmission Date: 20050727
  Serious: Yes (Other)
  Sender: FDA-Public Use
  Company Number: US-KINGPHARMUSA00001-K200500277

PATIENT
  Age: 44 Year
  Sex: Female
  Weight: 73 kg

DRUGS (4)
  1. LEVOXYL [Suspect]
     Indication: HYPOTHYROIDISM
     Dosage: 150 MCG, UNK
     Dates: start: 20000601
  2. LEVOXYL [Suspect]
     Dosage: 125 MCG, UNK
  3. LEVOXYL [Suspect]
     Dosage: 88/94 MCG, QD
     Dates: start: 20040101
  4. CLARITIN [Concomitant]
     Dosage: UNK, QD

REACTIONS (13)
  - ALOPECIA [None]
  - BLOOD PRESSURE DIASTOLIC INCREASED [None]
  - BLOOD THYROID STIMULATING HORMONE DECREASED [None]
  - DEPRESSED LEVEL OF CONSCIOUSNESS [None]
  - HAIR DISORDER [None]
  - NAIL GROWTH CESSATION [None]
  - ONYCHORRHEXIS [None]
  - PALPITATIONS [None]
  - PHARMACEUTICAL PRODUCT COMPLAINT [None]
  - THYROXINE INCREASED [None]
  - TREMOR [None]
  - TRI-IODOTHYRONINE INCREASED [None]
  - WEIGHT INCREASED [None]
